FAERS Safety Report 9778127 (Version 2)
Quarter: 2014Q1

REPORT INFORMATION
  Report Type: Spontaneous
  Country: US (occurrence: US)
  Receive Date: 20131223
  Receipt Date: 20140114
  Transmission Date: 20141002
  Serious: No
  Sender: FDA-Public Use
  Company Number: US-JNJFOC-20131203763

PATIENT
  Age: 51 Year
  Sex: Male
  Weight: 76.2 kg

DRUGS (5)
  1. INVEGA SUSTENNA [Suspect]
     Indication: SCHIZOPHRENIA
     Route: 030
     Dates: start: 2011
  2. SEROQUEL [Suspect]
     Indication: INSOMNIA
     Route: 065
     Dates: start: 20131204, end: 20131204
  3. SEROQUEL [Suspect]
     Indication: ARTHRALGIA
     Route: 065
     Dates: start: 20131204, end: 20131204
  4. GINKGO BILOBA [Concomitant]
     Indication: MEMORY IMPAIRMENT
     Route: 065
  5. NAPROXEN [Concomitant]
     Indication: PAIN
     Route: 065

REACTIONS (7)
  - Overdose [Recovered/Resolved]
  - Dysphonia [Recovered/Resolved]
  - Arthralgia [Unknown]
  - Insomnia [Unknown]
  - Palpitations [Recovered/Resolved]
  - Dizziness [Recovered/Resolved]
  - Dyskinesia [Recovered/Resolved]
